FAERS Safety Report 8011637-5 (Version None)
Quarter: 2011Q4

REPORT INFORMATION
  Report Type: 
  Country: None (occurrence: None)
  Receive Date: 20111228
  Receipt Date: 20111222
  Transmission Date: 20120403
  Serious: Yes (Hospitalization)
  Sender: FDA-Public Use
  Company Number: AU-B.I. PHARMACEUTICALS,INC./RIDGEFIELD-2011-AU-02099AU

PATIENT
  Sex: Male
  Weight: 70 kg

DRUGS (9)
  1. PLAVIX [Concomitant]
     Dosage: 75 MG
     Dates: start: 20080101
  2. FUROSEMIDE [Concomitant]
     Dosage: 60 MG
  3. METFORMIN HCL [Concomitant]
  4. CORALAN [Concomitant]
     Dosage: 10 MG
  5. PRADAXA [Suspect]
     Indication: ATRIAL FIBRILLATION
     Dosage: 220 MG
     Dates: start: 20110919, end: 20111021
  6. PRADAXA [Suspect]
     Indication: CEREBROVASCULAR ACCIDENT
  7. FUROSEMIDE [Concomitant]
     Dosage: 80 MG
  8. ATACAND [Concomitant]
  9. DIAMICRON [Concomitant]

REACTIONS (7)
  - MALAISE [None]
  - OCCULT BLOOD [None]
  - PALLOR [None]
  - DIZZINESS [None]
  - ANAEMIA [None]
  - ASTHENIA [None]
  - GASTROINTESTINAL CARCINOMA [None]
